FAERS Safety Report 9347169 (Version 1)
Quarter: 2013Q2

REPORT INFORMATION
  Report Type: Spontaneous
  Country: US (occurrence: US)
  Receive Date: 20130613
  Receipt Date: 20130613
  Transmission Date: 20140414
  Serious: Yes (Hospitalization)
  Sender: FDA-Public Use
  Company Number: US-ELI_LILLY_AND_COMPANY-US201306001686

PATIENT
  Age: 72 Year
  Sex: Female

DRUGS (2)
  1. HUMULIN REGULAR [Suspect]
     Indication: DIABETES MELLITUS
     Dosage: 30 U, QD
  2. HUMULIN REGULAR [Suspect]
     Dosage: 30 U, QD

REACTIONS (2)
  - Infection [Unknown]
  - Medication error [Unknown]
